FAERS Safety Report 9504131 (Version 1)
Quarter: 2013Q3

REPORT INFORMATION
  Report Type: Spontaneous
  Country: DK (occurrence: DK)
  Receive Date: 20130906
  Receipt Date: 20130906
  Transmission Date: 20140515
  Serious: Yes (Other)
  Sender: FDA-Public Use
  Company Number: DK-ACTAVIS-2013-16113

PATIENT
  Age: 46 Year
  Sex: Female

DRUGS (3)
  1. IRINOTECAN(UNKNOWN) [Suspect]
     Indication: GASTROINTESTINAL CARCINOMA
     Dosage: UNK
     Route: 065
     Dates: start: 20100419, end: 201005
  2. FLUORURACILA [Concomitant]
     Indication: GASTROINTESTINAL CARCINOMA
     Dosage: UNK
     Route: 065
     Dates: start: 20100419, end: 201005
  3. CALCIUMFOLINAT [Concomitant]
     Indication: GASTROINTESTINAL CARCINOMA
     Dosage: UNK
     Route: 065
     Dates: start: 20100419, end: 201005

REACTIONS (5)
  - Peripheral artery thrombosis [Unknown]
  - Neuralgia [Unknown]
  - Ischaemic neuropathy [Unknown]
  - Local swelling [Unknown]
  - Walking disability [Unknown]
